FAERS Safety Report 13413404 (Version 3)
Quarter: 2023Q2

REPORT INFORMATION
  Report Type: Spontaneous
  Country: US (occurrence: US)
  Receive Date: 20170406
  Receipt Date: 20230620
  Transmission Date: 20230722
  Serious: No
  Sender: FDA-Public Use
  Company Number: US-JNJFOC-20170312442

PATIENT
  Sex: Male

DRUGS (13)
  1. RISPERDAL [Suspect]
     Active Substance: RISPERIDONE
     Indication: Bipolar disorder
     Route: 048
     Dates: start: 20110909
  2. RISPERDAL [Suspect]
     Active Substance: RISPERIDONE
     Indication: Schizophrenia
     Route: 048
     Dates: start: 20110914, end: 20140217
  3. RISPERDAL [Suspect]
     Active Substance: RISPERIDONE
     Indication: Attention deficit hyperactivity disorder
     Route: 048
     Dates: start: 20140616
  4. RISPERDAL [Suspect]
     Active Substance: RISPERIDONE
     Indication: Anxiety
  5. RISPERDAL [Suspect]
     Active Substance: RISPERIDONE
     Indication: Intellectual disability
  6. RISPERDAL [Suspect]
     Active Substance: RISPERIDONE
     Indication: Dissociative identity disorder
  7. RISPERIDONE [Suspect]
     Active Substance: RISPERIDONE
     Indication: Bipolar disorder
     Dosage: IN VARYING DOSES OF 3 MG, 4 MG
     Route: 048
     Dates: start: 20110914, end: 20140414
  8. RISPERIDONE [Suspect]
     Active Substance: RISPERIDONE
     Indication: Schizophrenia
  9. RISPERIDONE [Suspect]
     Active Substance: RISPERIDONE
     Indication: Anxiety
  10. RISPERIDONE [Suspect]
     Active Substance: RISPERIDONE
     Indication: Dissociative identity disorder
  11. RISPERIDONE [Suspect]
     Active Substance: RISPERIDONE
     Indication: Attention deficit hyperactivity disorder
  12. RISPERIDONE [Suspect]
     Active Substance: RISPERIDONE
     Indication: Intellectual disability
  13. RISPERIDONE [Suspect]
     Active Substance: RISPERIDONE
     Indication: Product used for unknown indication
     Route: 065

REACTIONS (2)
  - Gynaecomastia [Unknown]
  - Emotional disorder [Unknown]
